FAERS Safety Report 10210833 (Version 1)
Quarter: 2014Q2

REPORT INFORMATION
  Report Type: Spontaneous
  Country: US (occurrence: None)
  Receive Date: 20140528
  Receipt Date: 20140528
  Transmission Date: 20141212
  Serious: Yes (Other)
  Sender: FDA-Public Use
  Company Number: 2014US003297

PATIENT
  Age: 67 Year
  Sex: Male

DRUGS (4)
  1. ICLUSIG [Suspect]
     Indication: CHRONIC LYMPHOCYTIC LEUKAEMIA
     Route: 048
  2. CIPROFLOXACIN (CIPROFLOXACIN HYDROCHLORIDE) [Concomitant]
  3. BENADRYL ALLERGY (DIPHENHYDRAMINE HYDROCHLORIDE) [Concomitant]
  4. AMBIEN (ZOLPIDEM TARTRATE) [Concomitant]

REACTIONS (4)
  - Graft versus host disease [None]
  - Arthritis fungal [None]
  - Fungal rhinitis [None]
  - Off label use [None]
